FAERS Safety Report 11729283 (Version 1)
Quarter: 2015Q4

REPORT INFORMATION
  Report Type: Spontaneous
  Country: None (occurrence: GB)
  Receive Date: 20151112
  Receipt Date: 20151112
  Transmission Date: 20160304
  Serious: Yes (Other)
  Sender: FDA-Public Use
  Company Number: GB-MEDAC PHARMA, INC.-1044113

PATIENT
  Age: 67 Year
  Sex: Female

DRUGS (2)
  1. METHOTREXATE SODIUM. [Suspect]
     Active Substance: METHOTREXATE SODIUM
  2. ENBREL [Suspect]
     Active Substance: ETANERCEPT
     Dates: start: 20150820

REACTIONS (8)
  - Eye swelling [Unknown]
  - Eye contusion [Unknown]
  - Face injury [Unknown]
  - Pelvic fracture [Unknown]
  - Liver function test abnormal [Unknown]
  - Fall [Recovering/Resolving]
  - Pain [Unknown]
  - Injection site bruising [Unknown]
